FAERS Safety Report 9527927 (Version 1)
Quarter: 2013Q1

REPORT INFORMATION
  Report Type: Spontaneous
  Country: US (occurrence: None)
  Receive Date: 20130314
  Receipt Date: 20130314
  Transmission Date: 20140127
  Serious: Yes (Other)
  Sender: FDA-Public Use
  Company Number: 1209USA000172

PATIENT
  Age: 54 Year
  Sex: Female

DRUGS (3)
  1. PEGINTRON [Suspect]
     Indication: HEPATITIS C
     Dates: start: 20120607, end: 20120921
  2. REBETOL [Suspect]
     Indication: HEPATITIS C
     Dates: start: 20120607, end: 20120921
  3. VICTRELIS [Suspect]
     Indication: HEPATITIS C
     Dates: start: 20120707, end: 20120822

REACTIONS (4)
  - Full blood count increased [None]
  - Injection site rash [None]
  - Skin fissures [None]
  - Drug ineffective [None]
